FAERS Safety Report 18901243 (Version 1)
Quarter: 2021Q1

REPORT INFORMATION
  Report Type: Spontaneous
  Country: SA (occurrence: SA)
  Receive Date: 20210216
  Receipt Date: 20210216
  Transmission Date: 20210420
  Serious: Yes (Hospitalization)
  Sender: FDA-Public Use
  Company Number: SA-ENDO PHARMACEUTICALS INC-2021-001107

PATIENT
  Age: 40 Year
  Sex: Male

DRUGS (3)
  1. NSAIDS [Concomitant]
     Active Substance: UNSPECIFIED INGREDIENT
     Indication: NECK PAIN
  2. TRAMADOL HYDROCHLORIDE. [Suspect]
     Active Substance: TRAMADOL HYDROCHLORIDE
     Indication: NECK PAIN
     Dosage: UNK UNKNOWN, UNKNOWN
     Route: 065
  3. PARACETAMOL [Concomitant]
     Active Substance: ACETAMINOPHEN
     Indication: NECK PAIN

REACTIONS (1)
  - Central-alveolar hypoventilation [Recovering/Resolving]
